FAERS Safety Report 8535896-5 (Version None)
Quarter: 2012Q3

REPORT INFORMATION
  Report Type: 
  Country: None (occurrence: None)
  Receive Date: 20120725
  Receipt Date: 20120718
  Transmission Date: 20120928
  Serious: Yes (Other)
  Sender: FDA-Public Use
  Company Number: PHHY2012MX063087

PATIENT
  Sex: Female

DRUGS (3)
  1. ENALAPRIL MALEATE [Concomitant]
     Dosage: 1 DF, EVERY 24 HOURS
     Dates: start: 20120301
  2. SANDIMMUNE [Suspect]
     Indication: MESANGIOPROLIFERATIVE GLOMERULONEPHRITIS
     Dosage: 50 MG, BID
     Route: 048
     Dates: start: 20120507
  3. PREDNISONE [Concomitant]
     Dosage: 0.5 DF, EVERY 24 HOURS
     Dates: start: 20120501

REACTIONS (2)
  - SCLERAL HYPERAEMIA [None]
  - SCLERAL OEDEMA [None]
